FAERS Safety Report 9937407 (Version 2)
Quarter: 2014Q1

REPORT INFORMATION
  Report Type: Spontaneous
  Country: IT (occurrence: IT)
  Receive Date: 20140303
  Receipt Date: 20140306
  Transmission Date: 20141002
  Serious: Yes (Other)
  Sender: FDA-Public Use
  Company Number: IT-009507513-1402ITA012955

PATIENT
  Age: 76 Year
  Sex: Female

DRUGS (2)
  1. LOSAPREX 100 MG COMPRESSE RIVESTITE CON FILM [Suspect]
     Dosage: 1 DF, DAILY
     Route: 048
     Dates: start: 20130325, end: 20130331
  2. NORVASC [Suspect]
     Dosage: 1 DF, DAILY
     Route: 048
     Dates: start: 20130325, end: 20130331

REACTIONS (2)
  - Dyspnoea [Recovering/Resolving]
  - Tongue oedema [Recovering/Resolving]
